FAERS Safety Report 19124760 (Version 2)
Quarter: 2022Q2

REPORT INFORMATION
  Report Type: Report from Study
  Country: JP (occurrence: JP)
  Receive Date: 20210413
  Receipt Date: 20220413
  Transmission Date: 20220721
  Serious: Yes (Hospitalization, Other)
  Sender: FDA-Public Use
  Company Number: JP-CHUGAI-A2021014127ROCHE

PATIENT

DRUGS (2)
  1. CAPECITABINE [Suspect]
     Active Substance: CAPECITABINE
     Indication: Small intestine adenocarcinoma
     Route: 048
  2. OXALIPLATIN [Concomitant]
     Active Substance: OXALIPLATIN

REACTIONS (4)
  - Bile duct stenosis [Recovering/Resolving]
  - Bile duct stone [Unknown]
  - Jaundice cholestatic [Unknown]
  - Off label use [Unknown]

NARRATIVE: CASE EVENT DATE: 20200101
